FAERS Safety Report 24578620 (Version 1)
Quarter: 2024Q4

REPORT INFORMATION
  Report Type: Spontaneous
  Country: US (occurrence: US)
  Receive Date: 20241105
  Receipt Date: 20241105
  Transmission Date: 20250115
  Serious: No
  Sender: ABBVIE
  Company Number: US-ABBVIE-5984236

PATIENT
  Age: 69 Year
  Sex: Female

DRUGS (1)
  1. BOTOX [Suspect]
     Active Substance: ONABOTULINUMTOXINA
     Indication: Migraine
     Dosage: TIME INTERVAL: AS NECESSARY: 155 IU?FREQUENCY: 1 FREQUENCY TIME: 1 FREQUENCY UNITS: ONCE
     Route: 030
     Dates: start: 202404, end: 202404

REACTIONS (5)
  - Fatigue [Unknown]
  - Influenza like illness [Unknown]
  - Pruritus [Unknown]
  - Headache [Unknown]
  - Fluid retention [Unknown]

NARRATIVE: CASE EVENT DATE: 20240425
